FAERS Safety Report 5906943-1 (Version None)
Quarter: 2008Q4

REPORT INFORMATION
  Report Type: 
  Country: None (occurrence: None)
  Receive Date: 20081003
  Receipt Date: 20080922
  Transmission Date: 20090506
  Serious: Yes (Other)
  Sender: FDA-Public Use
  Company Number: GB-JNJFOC-20080700982

PATIENT
  Sex: Female

DRUGS (7)
  1. REMICADE [Suspect]
     Indication: RHEUMATOID ARTHRITIS
     Route: 042
  2. ANALGESICS [Concomitant]
  3. METHOTREXATE [Concomitant]
     Route: 058
  4. MEBEVERINE [Concomitant]
  5. FOLIC ACID [Concomitant]
  6. LEVOTHYROXINE SODIUM [Concomitant]
  7. OMEPRAZOLE [Concomitant]

REACTIONS (1)
  - HERPES ZOSTER [None]
